FAERS Safety Report 4453490-2 (Version None)
Quarter: 2004Q3

REPORT INFORMATION
  Report Type: 
  Country: None (occurrence: None)
  Receive Date: 20040920
  Receipt Date: 20040901
  Transmission Date: 20050211
  Serious: Yes (Hospitalization)
  Sender: FDA-Public Use
  Company Number: JP-MERCK-0409USA00309

PATIENT
  Age: 66 Year
  Sex: Female

DRUGS (11)
  1. AMAZOLON [Concomitant]
     Route: 048
     Dates: end: 20040831
  2. 8-HOUR BAYER [Concomitant]
     Route: 048
  3. BARNIDIPINE HYDROCHLORIDE [Concomitant]
     Route: 048
     Dates: end: 20040831
  4. CALTAN [Concomitant]
     Route: 048
     Dates: end: 20040831
  5. CALCIUM POLYSTYRENE SULFONATE [Concomitant]
     Route: 048
     Dates: end: 20040831
  6. RYTHMODAN [Suspect]
     Route: 048
     Dates: end: 20040831
  7. PEPCID [Suspect]
     Route: 048
     Dates: end: 20040831
  8. PREDNISOLONE [Concomitant]
     Route: 048
     Dates: end: 20040831
  9. HALCION [Concomitant]
     Route: 048
     Dates: end: 20040831
  10. ARTANE [Concomitant]
     Route: 048
     Dates: end: 20040831
  11. AMOBAN [Concomitant]
     Route: 048
     Dates: end: 20040831

REACTIONS (2)
  - DIARRHOEA [None]
  - VENTRICULAR TACHYCARDIA [None]
